FAERS Safety Report 11635347 (Version 1)
Quarter: 2015Q4

REPORT INFORMATION
  Report Type: Spontaneous
  Country: JP (occurrence: JP)
  Receive Date: 20151016
  Receipt Date: 20151016
  Transmission Date: 20160304
  Serious: Yes (Hospitalization, Other)
  Sender: FDA-Public Use
  Company Number: JP-ROCHE-1646577

PATIENT
  Age: 85 Year
  Sex: Male
  Weight: 63 kg

DRUGS (5)
  1. COPEGUS [Suspect]
     Active Substance: RIBAVIRIN
     Indication: HEPATITIS C
     Route: 048
     Dates: start: 20150717, end: 20150825
  2. SELBEX [Concomitant]
     Active Substance: TEPRENONE
     Dosage: DOSAGE IS UNCERTAIN.
     Route: 065
     Dates: start: 20060816
  3. URSO [Concomitant]
     Active Substance: URSODIOL
     Dosage: DOSAGE IS UNCERTAIN.
     Route: 065
     Dates: start: 20140818
  4. SOVALDI [Suspect]
     Active Substance: SOFOSBUVIR
     Indication: HEPATITIS C
     Route: 048
     Dates: start: 20150717, end: 20150825
  5. TAGAMET [Concomitant]
     Active Substance: CIMETIDINE
     Dosage: DOSAGE IS UNCERTAIN.
     Route: 065
     Dates: start: 20060816

REACTIONS (3)
  - Ascites [Not Recovered/Not Resolved]
  - Haemoglobin decreased [Not Recovered/Not Resolved]
  - Oedema [Recovered/Resolved]

NARRATIVE: CASE EVENT DATE: 20150825
